FAERS Safety Report 8961335 (Version 4)
Quarter: 2013Q3

REPORT INFORMATION
  Report Type: Spontaneous
  Country: PE (occurrence: PE)
  Receive Date: 20121213
  Receipt Date: 20130723
  Transmission Date: 20140515
  Serious: Yes (Hospitalization, Other)
  Sender: FDA-Public Use
  Company Number: PE-JNJFOC-20121202641

PATIENT
  Sex: Male
  Weight: 89 kg

DRUGS (3)
  1. REMICADE [Suspect]
     Indication: ANKYLOSING SPONDYLITIS
     Route: 042
     Dates: start: 20100313
  2. PREDNISONE [Suspect]
     Indication: UVEITIS
     Route: 065
  3. DIOVAN [Concomitant]
     Route: 065

REACTIONS (4)
  - Oropharyngeal candidiasis [Recovered/Resolved]
  - Back pain [Unknown]
  - Uveitis [Unknown]
  - Drug resistance [Unknown]
